FAERS Safety Report 15944609 (Version 1)
Quarter: 2019Q1

REPORT INFORMATION
  Report Type: Spontaneous
  Country: US (occurrence: US)
  Receive Date: 20190211
  Receipt Date: 20190211
  Transmission Date: 20190417
  Serious: Yes (Hospitalization, Other)
  Sender: FDA-Public Use
  Company Number: US-TORRENT-00007611

PATIENT

DRUGS (4)
  1. LEVETIRACETAM. [Suspect]
     Active Substance: LEVETIRACETAM
     Indication: EARLY INFANTILE EPILEPTIC ENCEPHALOPATHY WITH BURST-SUPPRESSION
     Dosage: UNKNOWN
  2. PHENOBARBITAL. [Suspect]
     Active Substance: PHENOBARBITAL
     Indication: EARLY INFANTILE EPILEPTIC ENCEPHALOPATHY WITH BURST-SUPPRESSION
     Dosage: UNKNOWN
  3. CARBAMAZEPINE. [Suspect]
     Active Substance: CARBAMAZEPINE
     Indication: EARLY INFANTILE EPILEPTIC ENCEPHALOPATHY WITH BURST-SUPPRESSION
     Dosage: UNKNOWN
  4. TOPIRAMATE. [Suspect]
     Active Substance: TOPIRAMATE
     Indication: EARLY INFANTILE EPILEPTIC ENCEPHALOPATHY WITH BURST-SUPPRESSION
     Dosage: UNKNOWN

REACTIONS (3)
  - Off label use [Unknown]
  - Product use issue [Unknown]
  - Sedation [Unknown]
